FAERS Safety Report 7149971-3 (Version None)
Quarter: 2010Q4

REPORT INFORMATION
  Report Type: 
  Country: None (occurrence: None)
  Receive Date: 20101210
  Receipt Date: 20101130
  Transmission Date: 20110411
  Serious: Yes (Hospitalization)
  Sender: FDA-Public Use
  Company Number: US-ASTRAZENECA-2010SE56604

PATIENT
  Sex: Male

DRUGS (7)
  1. SEROQUEL [Suspect]
     Route: 048
     Dates: start: 20090101
  2. SEROQUEL [Suspect]
     Route: 048
     Dates: start: 20090513
  3. ZOLOFT [Concomitant]
  4. HYDROXYZINE HCL [Concomitant]
  5. PROVENTI [Concomitant]
     Dosage: 2 PUFFS 4 TIME DAILY
  6. QVAR 40 [Concomitant]
     Dosage: 2 PUFFS 2 TIMES DAILY
  7. HYDROCHLOROTHIAZIDE [Concomitant]

REACTIONS (4)
  - MOTOR DYSFUNCTION [None]
  - PRIAPISM [None]
  - PROSTATOMEGALY [None]
  - URINARY TRACT DISORDER [None]
